FAERS Safety Report 20715626 (Version 2)
Quarter: 2022Q2

REPORT INFORMATION
  Report Type: Spontaneous
  Country: US (occurrence: US)
  Receive Date: 20220415
  Receipt Date: 20220518
  Transmission Date: 20220721
  Serious: No
  Sender: FDA-Public Use
  Company Number: US-PFIZER INC-202101152934

PATIENT
  Age: 62 Year
  Sex: Female

DRUGS (1)
  1. XELJANZ [Suspect]
     Active Substance: TOFACITINIB CITRATE
     Indication: Rheumatoid arthritis
     Dosage: 5 MG, 2X/DAY
     Route: 048
     Dates: start: 20210725

REACTIONS (7)
  - Rash [Recovered/Resolved]
  - Laryngitis [Not Recovered/Not Resolved]
  - Infection [Unknown]
  - Pyrexia [Unknown]
  - Nasopharyngitis [Unknown]
  - Vomiting [Unknown]
  - Diarrhoea [Unknown]
